FAERS Safety Report 25145900 (Version 1)
Quarter: 2025Q2

REPORT INFORMATION
  Report Type: Spontaneous
  Country: CN (occurrence: CN)
  Receive Date: 20250401
  Receipt Date: 20250401
  Transmission Date: 20250717
  Serious: Yes (Life-Threatening, Hospitalization, Other)
  Sender: JIANGSU HANSOH PHARMACEUTICAL
  Company Number: CN-Jiangsu Hansoh Pharmaceutical Co., Ltd-2174008

PATIENT
  Age: 58 Year
  Sex: Female

DRUGS (3)
  1. GEMCITABINE HYDROCHLORIDE [Suspect]
     Active Substance: GEMCITABINE HYDROCHLORIDE
     Indication: Cholangiocarcinoma
     Dates: start: 20250301, end: 20250301
  2. CISPLATIN [Suspect]
     Active Substance: CISPLATIN
     Dates: start: 20250301, end: 20250303
  3. DURVALUMAB [Suspect]
     Active Substance: DURVALUMAB
     Dates: start: 20250301, end: 20250301

REACTIONS (1)
  - Myelosuppression [Recovering/Resolving]

NARRATIVE: CASE EVENT DATE: 20250314
